FAERS Safety Report 18165058 (Version 2)
Quarter: 2020Q4

REPORT INFORMATION
  Report Type: Spontaneous
  Country: NZ (occurrence: NZ)
  Receive Date: 20200818
  Receipt Date: 20201026
  Transmission Date: 20210113
  Serious: Yes (Death)
  Sender: FDA-Public Use
  Company Number: NZ-MYLANLABS-2020M1072664

PATIENT
  Age: 80 Year
  Sex: Female

DRUGS (7)
  1. DORZOLAMIDE AND TIMOLOL [Concomitant]
     Active Substance: DORZOLAMIDE\TIMOLOL
     Indication: GLAUCOMA
     Dosage: 1 GTT DROPS, BID, 1 DROP EACH EYE BD
     Dates: start: 201809, end: 20200801
  2. CLOZARIL [Suspect]
     Active Substance: CLOZAPINE
     Indication: VASCULAR DEMENTIA
  3. ESCITALOPRAM [Concomitant]
     Active Substance: ESCITALOPRAM OXALATE
     Indication: DEPRESSION
     Dosage: 10 MILLIGRAM, AM
     Route: 048
     Dates: start: 201611, end: 20200801
  4. FLUTICASONE W/SALMETEROL [Concomitant]
     Active Substance: FLUTICASONE PROPIONATE\SALMETEROL XINAFOATE
     Indication: CHRONIC OBSTRUCTIVE PULMONARY DISEASE
     Dosage: 2 DOSAGE FORM, BID, 2 PUFFS BD
     Dates: end: 20200801
  5. OMEPRAZOLE. [Concomitant]
     Active Substance: OMEPRAZOLE
     Indication: GASTROOESOPHAGEAL REFLUX DISEASE
     Dosage: 40 MILLIGRAM, AM
     Route: 048
     Dates: start: 201609, end: 20200801
  6. ATROPINE                           /00002802/ [Concomitant]
     Active Substance: ATROPINE
     Indication: GLAUCOMA
     Dosage: 1 GTT DROPS, AM, 1 DROP RIGHT EYE MANE
     Dates: start: 201809, end: 20200801
  7. CLOZARIL [Suspect]
     Active Substance: CLOZAPINE
     Indication: SCHIZOPHRENIA
     Dosage: 150 MILLIGRAM, QD (50 MG MANE AND 100 MG NOCTE)
     Route: 048
     Dates: start: 20160107, end: 20200801

REACTIONS (1)
  - Pneumonia [Fatal]

NARRATIVE: CASE EVENT DATE: 20200801
